FAERS Safety Report 4515934-7 (Version None)
Quarter: 2004Q4

REPORT INFORMATION
  Report Type: 
  Country: None (occurrence: None)
  Receive Date: 20041201
  Receipt Date: 20041116
  Transmission Date: 20050328
  Serious: Yes (Hospitalization, Other)
  Sender: FDA-Public Use
  Company Number: 2004S1003461

PATIENT
  Sex: Male

DRUGS (4)
  1. METOPROLOL TARTRATE [Suspect]
     Indication: ATRIAL FIBRILLATION
     Dosage: 25MG, QD, THEN 50MG, QS, 75MG QD, 100MG QD, 100MG BID, ORAL
     Route: 048
     Dates: start: 20041112
  2. FUROSEMIDE [Concomitant]
  3. GLYBURIDE [Concomitant]
  4. INSULIN [Concomitant]

REACTIONS (1)
  - DRUG INEFFECTIVE [None]
